FAERS Safety Report 4401336-0 (Version None)
Quarter: 2004Q3

REPORT INFORMATION
  Report Type: 
  Country: None (occurrence: None)
  Receive Date: 20040907
  Receipt Date: 20040316
  Transmission Date: 20050211
  Serious: No
  Sender: FDA-Public Use
  Company Number: US-BRISTOL-MYERS SQUIBB COMPANY-12534194

PATIENT
  Age: 86 Year
  Sex: Female
  Weight: 52 kg

DRUGS (2)
  1. COUMADIN [Suspect]
     Indication: CEREBROVASCULAR ACCIDENT
     Dosage: 5MG DAILY FOR ONE DAY A WEEK AND 2.5MG DAILY THE REST OF THE WEEK
     Route: 048
     Dates: start: 19980101, end: 20030501
  2. SYNTHROID [Concomitant]
     Route: 048

REACTIONS (1)
  - PROTHROMBIN LEVEL ABNORMAL [None]
